FAERS Safety Report 22234827 (Version 2)
Quarter: 2023Q2

REPORT INFORMATION
  Report Type: Report from Study
  Country: CN (occurrence: CN)
  Receive Date: 20230420
  Receipt Date: 20230421
  Transmission Date: 20230721
  Serious: Yes (Death)
  Sender: FDA-Public Use
  Company Number: CN-HALEON-CNCH2023HLN017372

PATIENT

DRUGS (3)
  1. IBUPROFEN [Suspect]
     Active Substance: IBUPROFEN
     Indication: Patent ductus arteriosus
     Dosage: 10 MG/KG
  2. IBUPROFEN [Suspect]
     Active Substance: IBUPROFEN
     Dosage: 5 MG/KG
  3. IBUPROFEN [Suspect]
     Active Substance: IBUPROFEN
     Dosage: UNK
     Dates: start: 20210501, end: 20210503

REACTIONS (1)
  - Therapy non-responder [Fatal]
